FAERS Safety Report 9053234 (Version 2)
Quarter: 2013Q1

REPORT INFORMATION
  Report Type: Spontaneous
  Country: IN (occurrence: IN)
  Receive Date: 20130207
  Receipt Date: 20130228
  Transmission Date: 20140127
  Serious: Yes (Hospitalization, Other)
  Sender: FDA-Public Use
  Company Number: PHHY2013IN011241

PATIENT
  Age: 69 Year
  Sex: Female

DRUGS (1)
  1. ACLASTA [Suspect]
     Indication: OSTEOPOROSIS
     Dosage: 5MG/100ML
     Route: 042
     Dates: start: 201207

REACTIONS (7)
  - Femur fracture [Unknown]
  - Tenderness [Unknown]
  - Pain in extremity [Unknown]
  - Local swelling [Unknown]
  - Weight bearing difficulty [Unknown]
  - Joint range of motion decreased [Unknown]
  - Fall [Unknown]
